FAERS Safety Report 18590165 (Version 1)
Quarter: 2020Q4

REPORT INFORMATION
  Report Type: Spontaneous
  Country: US (occurrence: US)
  Receive Date: 20201208
  Receipt Date: 20201208
  Transmission Date: 20210114
  Serious: No
  Sender: FDA-Public Use
  Company Number: US-ASTRAZENECA-2020SF60656

PATIENT
  Sex: Female

DRUGS (3)
  1. QUETIAPINE FUMARATE XR [Suspect]
     Active Substance: QUETIAPINE FUMARATE
     Indication: MAJOR DEPRESSION
     Dosage: 150.0MG UNKNOWN
     Route: 048
  2. QUETIAPINE FUMARATE XR [Suspect]
     Active Substance: QUETIAPINE FUMARATE
     Indication: MAJOR DEPRESSION
     Dosage: 100.0MG UNKNOWN
     Route: 048
  3. QUETIAPINE FUMARATE XR [Suspect]
     Active Substance: QUETIAPINE FUMARATE
     Indication: MAJOR DEPRESSION
     Dosage: 50.0MG UNKNOWN
     Route: 048

REACTIONS (6)
  - Paraesthesia [Unknown]
  - Liver function test abnormal [Unknown]
  - Weight increased [Unknown]
  - Blood cholesterol increased [Unknown]
  - Tremor [Unknown]
  - Tardive dyskinesia [Unknown]

NARRATIVE: CASE EVENT DATE: 20201117
